FAERS Safety Report 16885514 (Version 1)
Quarter: 2019Q4

REPORT INFORMATION
  Report Type: Spontaneous
  Country: US (occurrence: US)
  Receive Date: 20190809
  Receipt Date: 20190809
  Transmission Date: 20200122
  Serious: Yes (Hospitalization)
  Sender: FDA-Public Use
  Company Number: None

PATIENT
  Age: 63 Year
  Sex: Male

DRUGS (5)
  1. AIMOVIG [Suspect]
     Active Substance: ERENUMAB-AOOE
     Indication: MIGRAINE
     Route: 058
     Dates: start: 20190405, end: 20190730
  2. CALAN [Concomitant]
     Active Substance: VERAPAMIL HYDROCHLORIDE
  3. BACLOFEN. [Concomitant]
     Active Substance: BACLOFEN
  4. TOFRAMIL-PM [Concomitant]
  5. TREXIMIT (PM) [Concomitant]

REACTIONS (4)
  - Gastrointestinal obstruction [None]
  - Constipation [None]
  - Abdominal operation [None]
  - Gastrointestinal disorder [None]

NARRATIVE: CASE EVENT DATE: 201907
